FAERS Safety Report 7111271-5 (Version None)
Quarter: 2010Q4

REPORT INFORMATION
  Report Type: 
  Country: None (occurrence: None)
  Receive Date: 20101118
  Receipt Date: 20101109
  Transmission Date: 20110411
  Serious: Yes (Other)
  Sender: FDA-Public Use
  Company Number: US-PURDUE-USA-2010-0046482

PATIENT
  Sex: Male
  Weight: 88.435 kg

DRUGS (3)
  1. OXYCONTIN [Suspect]
     Indication: INTERVERTEBRAL DISC PROTRUSION
     Dosage: 320 MG, BID
     Route: 048
     Dates: start: 20100901
  2. OXYCONTIN [Suspect]
     Indication: PAIN
  3. SENOKOT [Concomitant]
     Indication: CONSTIPATION

REACTIONS (12)
  - BLINDNESS [None]
  - CONSTIPATION [None]
  - DRUG EFFECT DELAYED [None]
  - DRUG EFFECT INCREASED [None]
  - DRUG WITHDRAWAL SYNDROME [None]
  - FATIGUE [None]
  - HYPERHIDROSIS [None]
  - PALPITATIONS [None]
  - RASH [None]
  - SOMNOLENCE [None]
  - UNEVALUABLE EVENT [None]
  - VISION BLURRED [None]
